FAERS Safety Report 16904355 (Version 1)
Quarter: 2019Q4

REPORT INFORMATION
  Report Type: Spontaneous
  Country: US (occurrence: US)
  Receive Date: 20191009
  Receipt Date: 20191009
  Transmission Date: 20200122
  Serious: No
  Sender: FDA-Public Use
  Company Number: None

PATIENT
  Age: 36 Year
  Sex: Female
  Weight: 58.5 kg

DRUGS (13)
  1. TYLENOL [Concomitant]
     Active Substance: ACETAMINOPHEN
  2. VITAMIN K [Concomitant]
     Active Substance: PHYTONADIONE
  3. FISH OIL [Concomitant]
     Active Substance: FISH OIL
  4. PREDNISONE. [Concomitant]
     Active Substance: PREDNISONE
  5. ONGUARD [Concomitant]
  6. PENTASA [Concomitant]
     Active Substance: MESALAMINE
  7. ONDANSETRON [Concomitant]
     Active Substance: ONDANSETRON
  8. EPIPEN [Concomitant]
     Active Substance: EPINEPHRINE
  9. SERTRALINE [Concomitant]
     Active Substance: SERTRALINE HYDROCHLORIDE
  10. NORTRIPTYLINE [Concomitant]
     Active Substance: NORTRIPTYLINE
  11. VOLTAREN [Concomitant]
     Active Substance: DICLOFENAC SODIUM
  12. OXYCODONE-ACETAMINOPHEN [Suspect]
     Active Substance: ACETAMINOPHEN\OXYCODONE HYDROCHLORIDE
     Indication: CROHN^S DISEASE
     Dosage: ?          QUANTITY:100 TABLET(S);?
     Route: 048
  13. FLONASE [Concomitant]
     Active Substance: FLUTICASONE PROPIONATE

REACTIONS (8)
  - Product substitution issue [None]
  - Drug ineffective [None]
  - Nervousness [None]
  - Malaise [None]
  - Headache [None]
  - Cold sweat [None]
  - Nausea [None]
  - Withdrawal syndrome [None]

NARRATIVE: CASE EVENT DATE: 20190821
